FAERS Safety Report 9358900 (Version 1)
Quarter: 2013Q2

REPORT INFORMATION
  Report Type: Spontaneous
  Country: IT (occurrence: IT)
  Receive Date: 20130620
  Receipt Date: 20130620
  Transmission Date: 20140414
  Serious: Yes (Hospitalization)
  Sender: FDA-Public Use
  Company Number: IT-TEVA-411688ISR

PATIENT
  Age: 56 Year
  Sex: Female

DRUGS (2)
  1. METHOTREXATE [Suspect]
     Indication: SPONDYLOARTHROPATHY
  2. METHYLPREDNISOLONE [Concomitant]
     Indication: SPONDYLOARTHROPATHY

REACTIONS (1)
  - Interstitial lung disease [Recovering/Resolving]
